FAERS Safety Report 5087837-3 (Version None)
Quarter: 2006Q3

REPORT INFORMATION
  Report Type: 
  Country: None (occurrence: None)
  Receive Date: 20060821
  Receipt Date: 20060821
  Transmission Date: 20061208
  Serious: Yes (Life-Threatening, Hospitalization)
  Sender: FDA-Public Use
  Company Number: None

PATIENT
  Age: 44 Year
  Sex: Male
  Weight: 96.1626 kg

DRUGS (1)
  1. DIOVAN HCT [Suspect]
     Indication: HYPERTENSION
     Dosage: ONE DAILY  PO
     Route: 048
     Dates: start: 19980812, end: 20060607

REACTIONS (7)
  - ANKLE FRACTURE [None]
  - APLASTIC ANAEMIA [None]
  - BLOOD TEST ABNORMAL [None]
  - MALAISE [None]
  - PAROXYSMAL NOCTURNAL HAEMOGLOBINURIA [None]
  - PLATELET COUNT DECREASED [None]
  - WHITE BLOOD CELL COUNT DECREASED [None]
